FAERS Safety Report 7876332-1 (Version None)
Quarter: 2011Q4

REPORT INFORMATION
  Report Type: 
  Country: None (occurrence: None)
  Receive Date: 20111031
  Receipt Date: 20111025
  Transmission Date: 20120403
  Serious: Yes (Hospitalization, Other)
  Sender: FDA-Public Use
  Company Number: US-MERCK-1106USA02750

PATIENT
  Age: 57 Year
  Sex: Female
  Weight: 80 kg

DRUGS (6)
  1. FOSAMAX [Suspect]
     Indication: OSTEOPENIA
     Route: 048
     Dates: start: 20040301, end: 20100101
  2. FOSAMAX [Suspect]
     Indication: OSTEOPOROSIS PROPHYLAXIS
     Route: 048
     Dates: start: 20040301, end: 20100101
  3. ALENDRONATE SODIUM [Suspect]
     Route: 048
     Dates: start: 20080903, end: 20090101
  4. VITAMINS (UNSPECIFIED) [Concomitant]
     Route: 065
     Dates: start: 19710101
  5. VITAMIN D (UNSPECIFIED) [Concomitant]
     Route: 065
     Dates: start: 20040101
  6. CALCI-MIX [Concomitant]
     Route: 065
     Dates: start: 20040101

REACTIONS (37)
  - FALLOPIAN TUBE DISORDER [None]
  - BREAST CANCER [None]
  - ERYTHEMA [None]
  - SPINAL DISORDER [None]
  - INSOMNIA [None]
  - GASTROOESOPHAGEAL REFLUX DISEASE [None]
  - DIVERTICULITIS [None]
  - OEDEMA [None]
  - HYPERTENSION [None]
  - FEMUR FRACTURE [None]
  - HAEMORRHAGIC ANAEMIA [None]
  - HEPATIC CYST [None]
  - ESCHERICHIA URINARY TRACT INFECTION [None]
  - SPONDYLOLISTHESIS [None]
  - DELIRIUM [None]
  - RENAL FAILURE ACUTE [None]
  - FOOT DEFORMITY [None]
  - BACK PAIN [None]
  - HYPOKALAEMIA [None]
  - ARTHRALGIA [None]
  - MYOSITIS [None]
  - IMPAIRED HEALING [None]
  - TOOTH DISORDER [None]
  - SLEEP DISORDER [None]
  - OSTEOARTHRITIS [None]
  - DRUG INEFFECTIVE [None]
  - BREAST DISORDER [None]
  - FALL [None]
  - ESCHERICHIA SEPSIS [None]
  - HYPERGAMMAGLOBULINAEMIA BENIGN MONOCLONAL [None]
  - PEPTIC ULCER [None]
  - LUMBAR RADICULOPATHY [None]
  - HEART RATE IRREGULAR [None]
  - SPINAL COLUMN STENOSIS [None]
  - BLOOD CHOLESTEROL INCREASED [None]
  - PAIN [None]
  - FATIGUE [None]
